FAERS Safety Report 6290709-X (Version None)
Quarter: 2009Q3

REPORT INFORMATION
  Report Type: 
  Country: None (occurrence: None)
  Receive Date: 20090727
  Receipt Date: 20090326
  Transmission Date: 20100115
  Serious: Yes (Other)
  Sender: FDA-Public Use
  Company Number: OMPQ-PR-0903S-0214

PATIENT
  Age: 7 Year
  Sex: Female

DRUGS (1)
  1. OMNIPAQUE 300 [Suspect]
     Indication: DRUG USE FOR UNKNOWN INDICATION
     Dosage: SNGLE DOSE
     Dates: start: 20090320, end: 20090320

REACTIONS (1)
  - ANAPHYLACTOID REACTION [None]
